FAERS Safety Report 18753024 (Version 4)
Quarter: 2022Q1

REPORT INFORMATION
  Report Type: Report from Study
  Country: US (occurrence: US)
  Receive Date: 20210118
  Receipt Date: 20220324
  Transmission Date: 20220423
  Serious: Yes (Hospitalization, Other)
  Sender: FDA-Public Use
  Company Number: US-TAKEDA-2020TUS008314

PATIENT
  Age: 56 Year
  Sex: Female
  Weight: 175 kg

DRUGS (4)
  1. VEDOLIZUMAB [Suspect]
     Active Substance: VEDOLIZUMAB
     Indication: Colitis ulcerative
     Dosage: 300 MILLIGRAM, Q4WEEKS
     Route: 042
  2. MOTEGRITY [Suspect]
     Active Substance: PRUCALOPRIDE SUCCINATE
     Indication: Constipation
     Dosage: UNK
     Route: 065
  3. AMITIZA [Suspect]
     Active Substance: LUBIPROSTONE
     Indication: Constipation
     Dosage: UNK
     Route: 065
  4. FARXIGA [Concomitant]
     Active Substance: DAPAGLIFLOZIN PROPANEDIOL
     Indication: Diabetes mellitus
     Dosage: UNK

REACTIONS (15)
  - Systemic lupus erythematosus [Unknown]
  - Adverse food reaction [Unknown]
  - Rectal prolapse [Unknown]
  - Fall [Unknown]
  - Pelvic organ prolapse [Unknown]
  - Vaginal prolapse [Unknown]
  - Bladder prolapse [Unknown]
  - Weight decreased [Unknown]
  - Traumatic haematoma [Unknown]
  - Contusion [Unknown]
  - Anal fissure [Unknown]
  - Constipation [Unknown]
  - Fatigue [Unknown]
  - Therapeutic reaction time decreased [Unknown]
  - Off label use [Unknown]

NARRATIVE: CASE EVENT DATE: 20210615
